FAERS Safety Report 24750599 (Version 1)
Quarter: 2024Q4

REPORT INFORMATION
  Report Type: Spontaneous
  Country: US (occurrence: US)
  Receive Date: 20241218
  Receipt Date: 20241218
  Transmission Date: 20250114
  Serious: No
  Sender: AMGEN
  Company Number: US-AMGEN-USASP2024246598

PATIENT
  Age: 78 Year
  Sex: Female

DRUGS (2)
  1. MVASI [Suspect]
     Active Substance: BEVACIZUMAB-AWWB
     Indication: Malignant peritoneal neoplasm
     Dosage: UNK  DOSE ORDERED: 1400MG,  DOSE REQUESTED: 400MG X3
     Route: 065
  2. MVASI [Suspect]
     Active Substance: BEVACIZUMAB-AWWB
     Dosage: UNK  DOSE ORDERED: 1400MG,  DOSE REQUESTED:  100MG X2
     Route: 065

REACTIONS (2)
  - Eye swelling [Unknown]
  - Tachypnoea [Unknown]

NARRATIVE: CASE EVENT DATE: 20241210
